FAERS Safety Report 12836103 (Version 1)
Quarter: 2016Q4

REPORT INFORMATION
  Report Type: Spontaneous
  Country: US (occurrence: US)
  Receive Date: 20161011
  Receipt Date: 20161011
  Transmission Date: 20170207
  Serious: No
  Sender: FDA-Public Use
  Company Number: US-BAYER-2016-194712

PATIENT
  Sex: Female
  Weight: 49.88 kg

DRUGS (1)
  1. MIRALAX [Suspect]
     Active Substance: POLYETHYLENE GLYCOL 3350
     Indication: CONSTIPATION
     Dosage: 1 DF, QD
     Route: 048

REACTIONS (5)
  - Expired product administered [Unknown]
  - Muscle spasms [Unknown]
  - Off label use [Unknown]
  - Product use issue [Unknown]
  - Drug ineffective [None]
